FAERS Safety Report 10493498 (Version 2)
Quarter: 2014Q4

REPORT INFORMATION
  Report Type: Spontaneous
  Country: US (occurrence: US)
  Receive Date: 20141002
  Receipt Date: 20141118
  Transmission Date: 20150528
  Serious: No
  Sender: FDA-Public Use
  Company Number: US-GLAXOSMITHKLINE-A1084860A

PATIENT
  Sex: Female

DRUGS (19)
  1. POTASSIUM [Concomitant]
     Active Substance: POTASSIUM
  2. MONTELUKAST [Concomitant]
     Active Substance: MONTELUKAST SODIUM
  3. GABAPENTIN. [Concomitant]
     Active Substance: GABAPENTIN
  4. TRAZODONE [Concomitant]
     Active Substance: TRAZODONE HYDROCHLORIDE
  5. TRAMADOL [Concomitant]
     Active Substance: TRAMADOL
  6. BROVANA [Concomitant]
     Active Substance: ARFORMOTEROL TARTRATE
  7. ALBUTEROL. [Concomitant]
     Active Substance: ALBUTEROL
  8. COATED ASPIRIN [Concomitant]
  9. AMITIZA [Concomitant]
     Active Substance: LUBIPROSTONE
  10. SPIRIVA [Concomitant]
     Active Substance: TIOTROPIUM BROMIDE MONOHYDRATE
  11. CLONAZEPAM. [Concomitant]
     Active Substance: CLONAZEPAM
  12. PROAIR HFA [Concomitant]
     Active Substance: ALBUTEROL SULFATE
  13. BACLOFEN. [Concomitant]
     Active Substance: BACLOFEN
  14. DONEPEZIL [Concomitant]
     Active Substance: DONEPEZIL
  15. ESTRADIOL. [Concomitant]
     Active Substance: ESTRADIOL
  16. ALEVE [Concomitant]
     Active Substance: NAPROXEN SODIUM
  17. NIACIN. [Concomitant]
     Active Substance: NIACIN
  18. ADVAIR DISKUS [Suspect]
     Active Substance: FLUTICASONE PROPIONATE\SALMETEROL XINAFOATE
     Indication: CHRONIC OBSTRUCTIVE PULMONARY DISEASE
     Dosage: 250/50
     Route: 055
     Dates: start: 201402
  19. CALCIUM [Concomitant]
     Active Substance: CALCIUM

REACTIONS (2)
  - Product quality issue [Unknown]
  - Dyspnoea [Not Recovered/Not Resolved]
